FAERS Safety Report 6705272-6 (Version None)
Quarter: 2010Q2

REPORT INFORMATION
  Report Type: 
  Country: None (occurrence: None)
  Receive Date: 20100430
  Receipt Date: 20100427
  Transmission Date: 20101027
  Serious: Yes (Death, Life-Threatening, Hospitalization)
  Sender: FDA-Public Use
  Company Number: JP-ROCHE-641184

PATIENT
  Sex: Male

DRUGS (21)
  1. TOCILIZUMAB [Suspect]
     Indication: RHEUMATOID ARTHRITIS
     Route: 041
     Dates: start: 20080804, end: 20080804
  2. TOCILIZUMAB [Suspect]
     Route: 041
     Dates: start: 20080901, end: 20080901
  3. TOCILIZUMAB [Suspect]
     Route: 041
     Dates: start: 20080929, end: 20080929
  4. TOCILIZUMAB [Suspect]
     Route: 041
     Dates: start: 20081027, end: 20081027
  5. TOCILIZUMAB [Suspect]
     Route: 041
     Dates: start: 20081126, end: 20081126
  6. TOCILIZUMAB [Suspect]
     Route: 041
     Dates: start: 20081222, end: 20081222
  7. TOCILIZUMAB [Suspect]
     Route: 041
     Dates: start: 20090119, end: 20090119
  8. TOCILIZUMAB [Suspect]
     Route: 041
     Dates: start: 20090216, end: 20090216
  9. TOCILIZUMAB [Suspect]
     Route: 041
     Dates: start: 20090316, end: 20090316
  10. TOCILIZUMAB [Suspect]
     Route: 041
     Dates: start: 20090415, end: 20090415
  11. TOCILIZUMAB [Suspect]
     Route: 041
     Dates: start: 20090513, end: 20090513
  12. TOCILIZUMAB [Suspect]
     Route: 041
     Dates: start: 20090617, end: 20090617
  13. PREDONINE [Suspect]
     Indication: RHEUMATOID ARTHRITIS
     Route: 048
  14. VOLTAREN [Concomitant]
     Dosage: DRUG NAME:VOLTAREN(DICLOFENAC SODIUM)
     Route: 048
  15. ALOSENN [Concomitant]
     Dosage: DRUG NAME:ALOSENN(SENNA LEAF_SENNA POD).
     Route: 048
     Dates: end: 20090715
  16. ISCOTIN [Concomitant]
     Route: 048
  17. ISCOTIN [Concomitant]
     Route: 048
     Dates: start: 20090203, end: 20090715
  18. PYDOXAL [Concomitant]
     Route: 048
     Dates: end: 20090715
  19. KOLANTYL [Concomitant]
     Route: 048
     Dates: end: 20090715
  20. MAGNESIUM OXIDE [Concomitant]
     Route: 048
     Dates: end: 20090715
  21. VOLTAREN [Concomitant]
     Dosage: DOSE FORM: RECTAL SUPPOSITORY.
     Route: 054
     Dates: start: 20090203, end: 20090715

REACTIONS (6)
  - DISSEMINATED INTRAVASCULAR COAGULATION [None]
  - PERITONITIS [None]
  - PNEUMONIA [None]
  - RENAL FAILURE ACUTE [None]
  - SEPTIC SHOCK [None]
  - SMALL INTESTINAL PERFORATION [None]
